FAERS Safety Report 10499994 (Version 2)
Quarter: 2014Q4

REPORT INFORMATION
  Report Type: Spontaneous
  Country: US (occurrence: US)
  Receive Date: 20141006
  Receipt Date: 20141006
  Transmission Date: 20150528
  Serious: No
  Sender: FDA-Public Use
  Company Number: US-AMGEN INC.-USASP2014051033

PATIENT
  Age: 58 Year
  Sex: Female
  Weight: 62.59 kg

DRUGS (5)
  1. PROAIR HFA [Concomitant]
     Active Substance: ALBUTEROL SULFATE
  2. METOPROLOL [Concomitant]
     Active Substance: METOPROLOL
  3. PROLIA [Suspect]
     Active Substance: DENOSUMAB
     Indication: OSTEOPOROSIS POSTMENOPAUSAL
     Dosage: 60 UNK, UNK
     Route: 058
     Dates: start: 20140702
  4. AMLODIPINE [Concomitant]
     Active Substance: AMLODIPINE BESYLATE
  5. PREVACID [Concomitant]
     Active Substance: LANSOPRAZOLE

REACTIONS (7)
  - Diarrhoea [Unknown]
  - Headache [Unknown]
  - Pyrexia [Recovering/Resolving]
  - Malaise [Unknown]
  - Micturition urgency [Recovering/Resolving]
  - Back pain [Recovering/Resolving]
  - Influenza like illness [Unknown]

NARRATIVE: CASE EVENT DATE: 20140703
